FAERS Safety Report 22023032 (Version 16)
Quarter: 2025Q1

REPORT INFORMATION
  Report Type: Spontaneous
  Country: CA (occurrence: CA)
  Receive Date: 20230222
  Receipt Date: 20250206
  Transmission Date: 20250408
  Serious: Yes (Other)
  Sender: CELLTRION
  Company Number: CA-CELLTRION INC.-2022CA007701

PATIENT

DRUGS (21)
  1. INFLECTRA [Suspect]
     Active Substance: INFLIXIMAB-DYYB
     Indication: Colitis ulcerative
     Route: 042
     Dates: start: 20220603
  2. INFLECTRA [Suspect]
     Active Substance: INFLIXIMAB-DYYB
     Route: 042
     Dates: start: 202210
  3. INFLECTRA [Suspect]
     Active Substance: INFLIXIMAB-DYYB
     Route: 042
  4. INFLECTRA [Suspect]
     Active Substance: INFLIXIMAB-DYYB
     Route: 042
  5. INFLECTRA [Suspect]
     Active Substance: INFLIXIMAB-DYYB
     Route: 042
     Dates: start: 20230222
  6. INFLECTRA [Suspect]
     Active Substance: INFLIXIMAB-DYYB
     Route: 042
     Dates: start: 20230410
  7. INFLECTRA [Suspect]
     Active Substance: INFLIXIMAB-DYYB
     Route: 042
  8. INFLECTRA [Suspect]
     Active Substance: INFLIXIMAB-DYYB
     Route: 042
  9. INFLECTRA [Suspect]
     Active Substance: INFLIXIMAB-DYYB
     Route: 042
  10. INFLECTRA [Suspect]
     Active Substance: INFLIXIMAB-DYYB
     Route: 042
  11. INFLECTRA [Suspect]
     Active Substance: INFLIXIMAB-DYYB
     Route: 042
  12. INFLECTRA [Suspect]
     Active Substance: INFLIXIMAB-DYYB
     Route: 042
  13. INFLECTRA [Suspect]
     Active Substance: INFLIXIMAB-DYYB
     Route: 042
     Dates: start: 20240617
  14. INFLECTRA [Suspect]
     Active Substance: INFLIXIMAB-DYYB
     Route: 042
  15. INFLECTRA [Suspect]
     Active Substance: INFLIXIMAB-DYYB
     Route: 042
  16. VITAMIN B12 [Concomitant]
     Active Substance: CYANOCOBALAMIN
  17. VITAMIN D NOS [Concomitant]
     Active Substance: CHOLECALCIFEROL\ERGOCALCIFEROL
  18. CITALOPRAM [Concomitant]
     Active Substance: CITALOPRAM
  19. PROVERA [Concomitant]
     Active Substance: MEDROXYPROGESTERONE ACETATE
  20. TRAZODONE [Concomitant]
     Active Substance: TRAZODONE HYDROCHLORIDE
  21. NASONEX [Concomitant]
     Active Substance: MOMETASONE FUROATE

REACTIONS (18)
  - Colitis ulcerative [Not Recovered/Not Resolved]
  - Drug ineffective [Not Recovered/Not Resolved]
  - Drug level decreased [Unknown]
  - Condition aggravated [Recovered/Resolved]
  - COVID-19 [Unknown]
  - Frequent bowel movements [Recovered/Resolved]
  - Diarrhoea [Not Recovered/Not Resolved]
  - Blood pressure increased [Unknown]
  - COVID-19 [Recovered/Resolved]
  - Weight increased [Unknown]
  - Sinus congestion [Recovered/Resolved]
  - Cough [Recovered/Resolved]
  - Accidental underdose [Unknown]
  - Poor quality product administered [Unknown]
  - Off label use [Unknown]
  - Off label use [Unknown]
  - Intentional product use issue [Unknown]
  - Incorrect dose administered [Unknown]

NARRATIVE: CASE EVENT DATE: 20221016
